FAERS Safety Report 6942228-2 (Version None)
Quarter: 2010Q3

REPORT INFORMATION
  Report Type: 
  Country: None (occurrence: None)
  Receive Date: 20100823
  Receipt Date: 20100805
  Transmission Date: 20110219
  Serious: Yes (Other)
  Sender: FDA-Public Use
  Company Number: ACO_01659_2010

PATIENT
  Sex: Female
  Weight: 61.2356 kg

DRUGS (6)
  1. AMPYRA [Suspect]
     Indication: GAIT DISTURBANCE
     Dosage: 10 MG BID ORAL
     Route: 048
     Dates: start: 20100727, end: 20100729
  2. COPAXONE [Concomitant]
  3. DAILY MULTIVITAMIN [Concomitant]
  4. CALCIUM [Concomitant]
  5. VITAMIN B-12 [Concomitant]
  6. VITAMINE D VOOR SENIOREN [Concomitant]

REACTIONS (3)
  - ALTERED STATE OF CONSCIOUSNESS [None]
  - AMNESIA [None]
  - COMPLEX PARTIAL SEIZURES [None]
